FAERS Safety Report 4291529-8 (Version None)
Quarter: 2004Q1

REPORT INFORMATION
  Report Type: 
  Country: None (occurrence: None)
  Receive Date: 20040210
  Receipt Date: 20040210
  Transmission Date: 20041129
  Serious: Yes (Hospitalization)
  Sender: FDA-Public Use
  Company Number: None

PATIENT
  Age: 56 Year
  Sex: Male
  Weight: 62 kg

DRUGS (1)
  1. SPIRONOLACTONE [Suspect]
     Indication: ASCITES
     Dosage: 100 MG PO BID
     Route: 048

REACTIONS (1)
  - BLOOD POTASSIUM INCREASED [None]
